FAERS Safety Report 8175072-1 (Version None)
Quarter: 2012Q1

REPORT INFORMATION
  Report Type: 
  Country: None (occurrence: None)
  Receive Date: 20120229
  Receipt Date: 20120222
  Transmission Date: 20120608
  Serious: Yes (Other)
  Sender: FDA-Public Use
  Company Number: PHHY2012ES007123

PATIENT
  Age: 45 Year
  Sex: Male

DRUGS (3)
  1. NEVIRAPINE [Concomitant]
     Indication: HIV INFECTION
     Dates: start: 20091101
  2. TRUVADA [Concomitant]
     Indication: HIV INFECTION
     Dates: start: 20091101
  3. METHYLPREDNISOLONE [Suspect]
     Indication: PNEUMONIA
     Dosage: 1 MG/KG/DAY

REACTIONS (11)
  - COUGH [None]
  - RESPIRATORY FAILURE [None]
  - HUMAN HERPESVIRUS 8 INFECTION [None]
  - HEPATOMEGALY [None]
  - SPLENOMEGALY [None]
  - LYMPHADENOPATHY [None]
  - PANCYTOPENIA [None]
  - GENITAL LESION [None]
  - HYPOTENSION [None]
  - KAPOSI'S SARCOMA [None]
  - PYREXIA [None]
